FAERS Safety Report 7629677-4 (Version None)
Quarter: 2011Q3

REPORT INFORMATION
  Report Type: 
  Country: None (occurrence: None)
  Receive Date: 20110715
  Receipt Date: 20110707
  Transmission Date: 20111222
  Serious: Yes (Other)
  Sender: FDA-Public Use
  Company Number: 1000020778

PATIENT
  Age: 81 Year
  Sex: Female
  Weight: 57 kg

DRUGS (2)
  1. MEMANTINE HYDROCHLORIDE [Suspect]
     Indication: DEMENTIA
     Dosage: 20 MG (20 MG, 1 IN 1 D)
     Dates: start: 20101220, end: 20110520
  2. PRONEURIN (PROMETHAZINE HYDROCHLORIDE) (PROMETHAZINE HYDROCHLORIDE) [Concomitant]

REACTIONS (3)
  - BEDRIDDEN [None]
  - DIZZINESS [None]
  - GAIT DISTURBANCE [None]
